FAERS Safety Report 5249178-0 (Version None)
Quarter: 2007Q1

REPORT INFORMATION
  Report Type: 
  Country: None (occurrence: None)
  Receive Date: 20070223
  Receipt Date: 20070208
  Transmission Date: 20070707
  Serious: Yes (Other)
  Sender: FDA-Public Use
  Company Number: AZAES200700064

PATIENT
  Age: 70 Year
  Sex: Male
  Weight: 65 kg

DRUGS (10)
  1. AZACITIDINE (AZACITIDINE) (INJECTION) [Suspect]
     Indication: MYELODYSPLASTIC SYNDROME
     Dosage: 75 MG/M2 (DAILY X 7 DAYS), SUBCUTANEOUS
     Route: 058
     Dates: start: 20060829, end: 20060904
  2. ATENOLOL [Concomitant]
  3. REPAGLINIDE [Concomitant]
  4. CLORAZEPATE DIPOTASSIUM [Concomitant]
  5. ACETYLSALICYLIC ACID SRT [Concomitant]
  6. METFORMINE (METFORMIN) [Concomitant]
  7. HYPERPROTEIC SUPPLEMENTS [Concomitant]
  8. AMIODARONE HCL [Concomitant]
  9. FLUCONAZOLE [Concomitant]
  10. CIPROFLOXACIN [Concomitant]

REACTIONS (6)
  - ANAL FISSURE [None]
  - CONSTIPATION [None]
  - EPIDIDYMITIS [None]
  - NEUTROPENIA [None]
  - PROSTATE CANCER [None]
  - TESTICULAR PAIN [None]
